FAERS Safety Report 6780769-1 (Version None)
Quarter: 2010Q2

REPORT INFORMATION
  Report Type: 
  Country: None (occurrence: None)
  Receive Date: 20100621
  Receipt Date: 20100610
  Transmission Date: 20101027
  Serious: No
  Sender: FDA-Public Use
  Company Number: US-JNJFOC-20100600069

PATIENT
  Sex: Female
  Weight: 61.24 kg

DRUGS (8)
  1. DURAGESIC-100 [Suspect]
     Indication: PAIN
     Route: 062
  2. DURAGESIC-100 [Suspect]
     Route: 062
  3. FENTANYL [Suspect]
     Indication: PAIN
     Route: 062
     Dates: start: 20090101, end: 20100101
  4. PAROXETINE HCL [Concomitant]
     Indication: DEPRESSION
     Route: 048
  5. PROCHLORPERAZINE [Concomitant]
     Indication: NAUSEA
     Dosage: TWICE DAILY
     Route: 048
  6. HYDROMORPHONE [Concomitant]
     Indication: PAIN
     Dosage: THRICE DAILY
     Route: 048
  7. TEMAZEPAM [Concomitant]
     Indication: SLEEP DISORDER
     Dosage: 1 AT NIGHT
     Route: 048
  8. VITAMIN D [Concomitant]
     Indication: BONE DISORDER
     Dosage: 1 ON SUNDAY
     Route: 048

REACTIONS (4)
  - DRUG INEFFECTIVE [None]
  - PAIN [None]
  - PRODUCT ADHESION ISSUE [None]
  - WRONG TECHNIQUE IN DRUG USAGE PROCESS [None]
